FAERS Safety Report 4747530-0 (Version None)
Quarter: 2005Q3

REPORT INFORMATION
  Report Type: 
  Country: None (occurrence: None)
  Receive Date: 20050817
  Receipt Date: 20050817
  Transmission Date: 20060218
  Serious: No
  Sender: FDA-Public Use
  Company Number: None

PATIENT
  Age: 35 Year
  Sex: Male
  Weight: 115.2136 kg

DRUGS (3)
  1. TOPAMAX [Suspect]
     Indication: BIPOLAR DISORDER
     Dosage: 75MG 2X DAILY ORAL
     Route: 048
     Dates: start: 20050805, end: 20050814
  2. TOPAMAX [Suspect]
     Indication: WEIGHT DECREASED
     Dosage: 75MG 2X DAILY ORAL
     Route: 048
     Dates: start: 20050805, end: 20050814
  3. SEROQUEL [Concomitant]

REACTIONS (3)
  - DIPLOPIA [None]
  - OCULAR VASCULAR DISORDER [None]
  - VISION BLURRED [None]
